FAERS Safety Report 10278655 (Version 3)
Quarter: 2015Q3

REPORT INFORMATION
  Report Type: Spontaneous
  Country: DK (occurrence: DK)
  Receive Date: 20140704
  Receipt Date: 20150903
  Transmission Date: 20151125
  Serious: Yes (Other)
  Sender: FDA-Public Use
  Company Number: DK-AMGEN-DNKSP2014048492

PATIENT
  Age: 67 Year
  Sex: Female
  Weight: 55 kg

DRUGS (6)
  1. BONVIVA [Suspect]
     Active Substance: IBANDRONATE SODIUM
     Indication: OSTEOPOROSIS
     Dosage: 150 MG, UNK
     Route: 048
     Dates: start: 20100615, end: 20100615
  2. PREDNISOLONE. [Concomitant]
     Active Substance: PREDNISOLONE
     Dosage: UNK
     Dates: start: 20041020
  3. PROLIA [Suspect]
     Active Substance: DENOSUMAB
     Indication: OSTEOPOROSIS
     Dosage: 60 MG, QM
     Route: 058
     Dates: start: 20140215
  4. PREDNISOLON [Concomitant]
     Active Substance: PREDNISOLONE
     Dosage: 5-25 MG, UNK
     Route: 048
     Dates: start: 20041020, end: 20041110
  5. FOSAMAX [Suspect]
     Active Substance: ALENDRONATE SODIUM
     Indication: OSTEOPOROSIS
     Dosage: 70 MG, QWK
     Route: 048
     Dates: start: 20060615, end: 20140512
  6. FOSAMAX [Suspect]
     Active Substance: ALENDRONATE SODIUM
     Indication: OSTEOPOROSIS
     Dosage: 70 MG ONCE A WEEK
     Route: 048
     Dates: start: 20060615, end: 20140512

REACTIONS (7)
  - Swelling [Recovered/Resolved]
  - Pain [Recovered/Resolved]
  - Tooth extraction [Recovered/Resolved]
  - Osteonecrosis of jaw [Recovered/Resolved]
  - Oral cavity fistula [Recovered/Resolved]
  - Jaw operation [Recovered/Resolved]
  - Impaired healing [Recovered/Resolved]

NARRATIVE: CASE EVENT DATE: 20130624
